FAERS Safety Report 18254642 (Version 2)
Quarter: 2020Q3

REPORT INFORMATION
  Report Type: Spontaneous
  Country: US (occurrence: US)
  Receive Date: 20200910
  Receipt Date: 20200928
  Transmission Date: 20201103
  Serious: Yes (Death, Hospitalization, Other)
  Sender: FDA-Public Use
  Company Number: US-SA-2020SA245892

PATIENT

DRUGS (8)
  1. ALEMTUZUMAB [Suspect]
     Active Substance: ALEMTUZUMAB
     Indication: MULTIPLE SCLEROSIS
     Dosage: 12 MG
     Route: 041
     Dates: start: 20190513, end: 20190515
  2. ZOVIRAX [Concomitant]
     Active Substance: ACYCLOVIR
  3. NUEDEXTA [Concomitant]
     Active Substance: DEXTROMETHORPHAN HYDROBROMIDE\QUINIDINE SULFATE
  4. TYLENOL [Concomitant]
     Active Substance: ACETAMINOPHEN
  5. VITAMINS NOS [Concomitant]
     Active Substance: VITAMINS
  6. AMPYRA [Concomitant]
     Active Substance: DALFAMPRIDINE
  7. VYVANSE [Concomitant]
     Active Substance: LISDEXAMFETAMINE DIMESYLATE
  8. BACLOFEN. [Concomitant]
     Active Substance: BACLOFEN

REACTIONS (13)
  - Shock [Fatal]
  - Kidney infection [Fatal]
  - Renal failure [Fatal]
  - Back pain [Fatal]
  - Off label use [Unknown]
  - Nausea [Fatal]
  - Vomiting [Fatal]
  - Pulmonary haemorrhage [Fatal]
  - Vasculitis [Fatal]
  - Antineutrophil cytoplasmic antibody positive [Fatal]
  - Rash [Fatal]
  - Sepsis [Fatal]
  - Multiple organ dysfunction syndrome [Fatal]
